FAERS Safety Report 5341116-5 (Version None)
Quarter: 2007Q2

REPORT INFORMATION
  Report Type: 
  Country: None (occurrence: None)
  Receive Date: 20070405
  Receipt Date: 20060420
  Transmission Date: 20071010
  Serious: Yes (Other)
  Sender: FDA-Public Use
  Company Number: 2006P1000281

PATIENT
  Age: 42 Year
  Sex: Male
  Weight: 73 kg

DRUGS (2)
  1. BUSULFAN (BUSULFAN) [Suspect]
     Indication: STEM CELL TRANSPLANT
     Dosage: 0.8 MG/KG/Q6H;IV
     Route: 042
     Dates: start: 20060301, end: 20060305
  2. CYCLOPHOSPHAMIDE [Suspect]
     Indication: STEM CELL TRANSPLANT
     Dosage: 60 MG/KG;QD;IV
     Route: 042
     Dates: start: 20060306, end: 20060307

REACTIONS (1)
  - VENOOCCLUSIVE LIVER DISEASE [None]
